FAERS Safety Report 7209934-6 (Version None)
Quarter: 2011Q1

REPORT INFORMATION
  Report Type: 
  Country: None (occurrence: None)
  Receive Date: 20110105
  Receipt Date: 20101222
  Transmission Date: 20110831
  Serious: No
  Sender: FDA-Public Use
  Company Number: US-BIOGENIDEC-2010BI008666

PATIENT
  Sex: Female

DRUGS (1)
  1. TYSABRI [Suspect]
     Indication: MULTIPLE SCLEROSIS
     Route: 042
     Dates: start: 20100216

REACTIONS (13)
  - BACK PAIN [None]
  - HYPOAESTHESIA [None]
  - DIARRHOEA [None]
  - MUSCLE TWITCHING [None]
  - PAIN IN EXTREMITY [None]
  - GASTROINTESTINAL DISORDER [None]
  - ASTHENIA [None]
  - HEADACHE [None]
  - INFLUENZA LIKE ILLNESS [None]
  - PAIN [None]
  - ABDOMINAL PAIN UPPER [None]
  - FATIGUE [None]
  - GASTRIC DISORDER [None]
